FAERS Safety Report 8942203 (Version 1)
Quarter: 2012Q4

REPORT INFORMATION
  Report Type: Spontaneous
  Country: US (occurrence: None)
  Receive Date: 20121203
  Receipt Date: 20121203
  Transmission Date: 20130627
  Serious: Yes (Life-Threatening, Hospitalization)
  Sender: FDA-Public Use
  Company Number: None

PATIENT
  Age: 37 Year
  Sex: Female
  Weight: 62.5 kg

DRUGS (2)
  1. STEROID [Suspect]
     Dosage: x1 epidural
     Route: 008
     Dates: start: 20120927
  2. STEROID [Suspect]
     Dosage: x1 epidural
     Route: 008
     Dates: start: 20120927

REACTIONS (4)
  - Meningitis fungal [None]
  - Product contamination [None]
  - Headache [None]
  - Chills [None]
